FAERS Safety Report 4699792-6 (Version None)
Quarter: 2005Q2

REPORT INFORMATION
  Report Type: 
  Country: None (occurrence: None)
  Receive Date: 20050623
  Receipt Date: 20050613
  Transmission Date: 20051028
  Serious: Yes (Other)
  Sender: FDA-Public Use
  Company Number: 2005087094

PATIENT
  Age: 61 Year
  Sex: Female
  Weight: 68.0396 kg

DRUGS (10)
  1. CELEBREX [Suspect]
     Indication: BACK PAIN
     Dosage: 400 MG (200 MG, 2 IN 1 D), ORAL
     Route: 048
  2. EVISTA [Concomitant]
  3. LOZOL [Concomitant]
  4. MONTELUKAST SODIUM (MONTELUKAST SODIUM) [Concomitant]
  5. ZESTRIL [Concomitant]
  6. FAMOTIDINE [Concomitant]
  7. COMBIVENT [Concomitant]
  8. ADVAIR (FLUTICASONE PROPIONATE, SALMETEROL XINAFOATE) [Concomitant]
  9. VALTREX [Concomitant]
  10. VITAMINS (VITAMINS) [Concomitant]

REACTIONS (9)
  - BACK PAIN [None]
  - CARDIAC DISORDER [None]
  - CONDITION AGGRAVATED [None]
  - COUGH [None]
  - IMPAIRED WORK ABILITY [None]
  - LUNG DISORDER [None]
  - MALAISE [None]
  - PULMONARY HYPERTENSION [None]
  - TREATMENT NONCOMPLIANCE [None]
